FAERS Safety Report 17272251 (Version 1)
Quarter: 2020Q1

REPORT INFORMATION
  Report Type: Other
  Country: DE (occurrence: DE)
  Receive Date: 20200115
  Receipt Date: 20200115
  Transmission Date: 20200409
  Serious: Yes (Congenital Anomaly)
  Sender: FDA-Public Use
  Company Number: DE-SUNRISE PHARMACEUTICAL, INC.-2079045

PATIENT
  Age: 37 Year
  Sex: Female

DRUGS (2)
  1. FOLIC ACID. [Suspect]
     Active Substance: FOLIC ACID
     Indication: EPILEPSY
     Route: 065
  2. VALPROATE SODIUM. [Suspect]
     Active Substance: VALPROATE SODIUM
     Route: 065

REACTIONS (3)
  - Exposure during pregnancy [Unknown]
  - Premature labour [Unknown]
  - Premature rupture of membranes [Unknown]
